FAERS Safety Report 7664753-1 (Version None)
Quarter: 2011Q3

REPORT INFORMATION
  Report Type: 
  Country: None (occurrence: None)
  Receive Date: 20110806
  Receipt Date: 20110124
  Transmission Date: 20111222
  Serious: No
  Sender: FDA-Public Use
  Company Number: US-ABBOTT-11P-163-0700728-00

PATIENT
  Sex: Female
  Weight: 113.5 kg

DRUGS (11)
  1. NIASPAN [Suspect]
  2. CENTRUM SILVER [Concomitant]
     Indication: PRODUCT USED FOR UNKNOWN INDICATION
  3. ASPIRIN [Concomitant]
     Indication: PRODUCT USED FOR UNKNOWN INDICATION
  4. ATENOLOL CHLOR [Concomitant]
     Indication: BLOOD PRESSURE
     Dosage: 50/25 MG
  5. NIASPAN [Suspect]
     Dates: start: 20101101, end: 20110101
  6. METFORMIN HCL [Concomitant]
     Indication: DIABETES MELLITUS
  7. SIMVASTATIN [Concomitant]
     Indication: PRODUCT USED FOR UNKNOWN INDICATION
  8. NIASPAN [Suspect]
     Indication: BLOOD TRIGLYCERIDES INCREASED
     Dates: start: 20100901, end: 20101101
  9. PLAVIX [Concomitant]
     Indication: STENT PLACEMENT
  10. POTASSIUM [Concomitant]
     Indication: PRODUCT USED FOR UNKNOWN INDICATION
     Route: 048
  11. FUROSEMIDE [Concomitant]
     Indication: PRODUCT USED FOR UNKNOWN INDICATION

REACTIONS (3)
  - ERYTHEMA [None]
  - BURNING SENSATION [None]
  - PRURITUS [None]
